FAERS Safety Report 16366271 (Version 1)
Quarter: 2019Q3

REPORT INFORMATION
  Report Type: Spontaneous
  Country: US (occurrence: US)
  Receive Date: 20190528
  Receipt Date: 20190528
  Transmission Date: 20191004
  Serious: Yes (Hospitalization)
  Sender: FDA-Public Use
  Company Number: None

PATIENT
  Age: 29 Year
  Sex: Female
  Weight: 48.8 kg

DRUGS (1)
  1. INJECTAFER [Suspect]
     Active Substance: FERRIC CARBOXYMALTOSE
     Indication: IRON DEFICIENCY ANAEMIA
     Dosage: ?          OTHER FREQUENCY:WEEKLY;?
     Route: 041
     Dates: start: 20190526, end: 20190526

REACTIONS (7)
  - Throat irritation [None]
  - Cough [None]
  - Emotional distress [None]
  - Chills [None]
  - Dyspnoea [None]
  - Chest discomfort [None]
  - Tremor [None]

NARRATIVE: CASE EVENT DATE: 20190526
